FAERS Safety Report 4877367-3 (Version None)
Quarter: 2006Q1

REPORT INFORMATION
  Report Type: 
  Country: None (occurrence: None)
  Receive Date: 20060109
  Receipt Date: 20051228
  Transmission Date: 20060701
  Serious: Yes (Other)
  Sender: FDA-Public Use
  Company Number: 2006000150

PATIENT
  Sex: Female

DRUGS (1)
  1. NEURONTIN [Suspect]
     Indication: ILL-DEFINED DISORDER
     Dates: start: 20030101, end: 20050101

REACTIONS (4)
  - AMNESIA [None]
  - NERVE INJURY [None]
  - POST PROCEDURAL COMPLICATION [None]
  - SPINAL OPERATION [None]
